FAERS Safety Report 13373072 (Version 1)
Quarter: 2017Q1

REPORT INFORMATION
  Report Type: Spontaneous
  Country: US (occurrence: US)
  Receive Date: 20170326
  Receipt Date: 20170326
  Transmission Date: 20170429
  Serious: Yes (Other)
  Sender: FDA-Public Use
  Company Number: None

PATIENT
  Age: 33 Year
  Sex: Female
  Weight: 81 kg

DRUGS (2)
  1. OSELTAMIVIR PHOSPHATE. [Suspect]
     Active Substance: OSELTAMIVIR PHOSPHATE
     Indication: ANTIVIRAL PROPHYLAXIS
     Route: 048
     Dates: start: 20170323, end: 20170326
  2. TAMIFLU [Concomitant]
     Active Substance: OSELTAMIVIR PHOSPHATE

REACTIONS (2)
  - Abortion spontaneous [None]
  - Exposure during pregnancy [None]

NARRATIVE: CASE EVENT DATE: 20170326
